FAERS Safety Report 14576168 (Version 2)
Quarter: 2018Q2

REPORT INFORMATION
  Report Type: Spontaneous
  Country: DE (occurrence: DE)
  Receive Date: 20180227
  Receipt Date: 20180406
  Transmission Date: 20180711
  Serious: Yes (Other)
  Sender: FDA-Public Use
  Company Number: DE-SUN PHARMACEUTICAL INDUSTRIES LTD-2018RR-164571

PATIENT
  Sex: Female

DRUGS (1)
  1. ALENDRONSAURE BASICS EINMAL WOCHENTLICH 70MG TABLETTEN [Suspect]
     Active Substance: ALENDRONATE SODIUM
     Indication: OSTEOPOROSIS
     Dosage: ONCE A WEEK
     Route: 048
     Dates: start: 20180111

REACTIONS (4)
  - Tongue discomfort [Recovered/Resolved]
  - Swollen tongue [Recovered/Resolved]
  - Gingival swelling [Recovered/Resolved]
  - Gingival discomfort [Recovered/Resolved]

NARRATIVE: CASE EVENT DATE: 20180215
